FAERS Safety Report 9026596 (Version 1)
Quarter: 2012Q4

REPORT INFORMATION
  Report Type: Spontaneous
  Country: CH (occurrence: None)
  Receive Date: 20121226
  Receipt Date: 20121226
  Transmission Date: 20130627
  Serious: Yes (Other)
  Sender: FDA-Public Use
  Company Number: 2012034281

PATIENT
  Age: 15 Year
  Sex: Female

DRUGS (2)
  1. PRIVIGEN (IMMUNE GLOBULIN INTRAVENOUS (HUMAN) 10% LIQUID) [Suspect]
     Indication: SYNDROME GUILLAIN-BARRE
     Route: 042
     Dates: start: 20121126, end: 20121130
  2. PRIVIGEN (IMMUNE GLOBULIN INTRAVENOUS (HUMAN) 10% LIQUID) [Suspect]
     Indication: SYNDROME GUILLAIN-BARRE
     Dates: start: 20121204, end: 20121208

REACTIONS (1)
  - Haemolytic anaemia [None]
